FAERS Safety Report 7325746-7 (Version None)
Quarter: 2011Q1

REPORT INFORMATION
  Report Type: 
  Country: None (occurrence: None)
  Receive Date: 20110302
  Receipt Date: 20110221
  Transmission Date: 20110831
  Serious: Yes (Hospitalization, Other)
  Sender: FDA-Public Use
  Company Number: FR-PFIZER INC-2010147105

PATIENT
  Age: 72 Year
  Sex: Male
  Weight: 71.9 kg

DRUGS (71)
  1. LEVOCARNIL [Concomitant]
     Indication: SUPPLEMENTATION THERAPY
     Dosage: 1 G, 3X/DAY
     Route: 042
     Dates: start: 20101014
  2. HYDROCORTISONE [Concomitant]
     Dosage: 50 MG, 2X/DAY
     Route: 042
     Dates: start: 20101013, end: 20101020
  3. CALCIUM CHLORIDE ANHYDROUS AND CALCIUM CHLORIDE DIHYDRATE [Concomitant]
     Indication: HYPOCALCAEMIA
     Dosage: 2 G, CONTINUOUSLY 10 HRS
     Route: 042
     Dates: start: 20101002, end: 20101002
  4. SUFENTANIL CITRATE [Concomitant]
     Dosage: 5 MG/HR CONTINUOUS
     Route: 042
     Dates: start: 20101006, end: 20101006
  5. AMIODARONE [Concomitant]
     Dosage: 300 MG, CONTINUOUS
     Route: 042
     Dates: start: 20101002, end: 20101011
  6. FOLIC ACID [Concomitant]
     Indication: MEDICAL DIET
     Dosage: 25 MG, CONTINUOUS
     Route: 042
     Dates: start: 20101014
  7. ERYTHROMYCIN [Concomitant]
     Indication: GASTROINTESTINAL HYPERMOTILITY
     Dosage: 250 MG, 3X/DAY
     Route: 042
     Dates: start: 20101010, end: 20101012
  8. VANCOMYCIN [Concomitant]
     Indication: PERITONITIS
     Dosage: 2 G/L(2GM,CONTINUOUS)
     Route: 042
     Dates: start: 20101002, end: 20101018
  9. DOBUTAMIN ^HEXAL^ [Concomitant]
     Indication: CARDIAC FAILURE
     Dosage: 25 MG/HR
     Route: 042
     Dates: start: 20101002, end: 20101003
  10. ACETYLCYSTEINE [Concomitant]
     Indication: RENAL DISORDER
     Dosage: 0.6 G, 2X/DAY
     Route: 042
     Dates: start: 20101001, end: 20101003
  11. LEVOCARNITINE [Concomitant]
     Indication: SUPPLEMENTATION THERAPY
     Dosage: 1 G, 3X/DAY
     Route: 042
     Dates: start: 20101014
  12. HEPARIN [Concomitant]
     Dosage: 550 IU, DAILY
     Route: 042
     Dates: start: 20101010, end: 20101011
  13. ARGATROBAN [Suspect]
     Indication: HEPARIN-INDUCED THROMBOCYTOPENIA
     Dosage: 0.5 UG/KG/MIN (2ML/HR)
     Route: 042
     Dates: start: 20101022, end: 20101022
  14. HYDROCORTISONE [Concomitant]
     Indication: PRODUCT USED FOR UNKNOWN INDICATION
     Dosage: 50 MG, 3X/DAY
     Route: 042
     Dates: start: 20101011, end: 20101013
  15. MIDAZOLAM [Concomitant]
     Indication: SEDATION
     Dosage: 50 MG, CONTINUOUS
     Route: 042
     Dates: start: 20101002, end: 20101003
  16. ALBUMINAR-20 [Concomitant]
     Dosage: 100 ML, 2X/DAY
     Route: 042
     Dates: start: 20101015, end: 20101020
  17. ALBUMIN 4% [Concomitant]
     Dosage: 500 ML, 1X/DAY
     Route: 042
     Dates: start: 20101015, end: 20101015
  18. INNOHEP [Concomitant]
     Indication: PULMONARY EMBOLISM
     Dosage: 0.6 ML, 1X/DAY
     Route: 058
     Dates: end: 20101001
  19. HEPARIN [Concomitant]
     Indication: GASTRIC ULCER
     Dosage: 533 IU, DAILY
     Route: 042
     Dates: start: 20101007, end: 20101010
  20. PRIMAXIN [Concomitant]
     Indication: PERITONITIS
     Dosage: 500 MG, 3X/DAY
     Route: 042
     Dates: start: 20101001, end: 20101028
  21. TERBUTALINE SULFATE [Concomitant]
     Indication: BRONCHIAL DISORDER
     Dosage: 5 MG, 4X/DAY
     Route: 045
     Dates: start: 20101001, end: 20101006
  22. AMIODARONE [Concomitant]
     Indication: ARRHYTHMIA
     Dosage: 300 MG, CONTINUOUS DURING 3 HRS
     Route: 042
     Dates: start: 20101002, end: 20101002
  23. ALBUMINAR-20 [Concomitant]
     Dosage: 100 ML, 1X/DAY
     Route: 042
     Dates: start: 20101009, end: 20101009
  24. ESCITALOPRAM OXALATE [Concomitant]
     Indication: DEPRESSION
     Dosage: 10 MG, 1X/DAY
     Route: 048
     Dates: start: 20101021, end: 20101026
  25. ALBUMIN 4% [Concomitant]
     Indication: HYPOALBUMINAEMIA
     Dosage: 500 ML, 1X/DAY
     Route: 042
     Dates: start: 20101001, end: 20101004
  26. ESOMEPRAZOLE [Concomitant]
     Dosage: 40 MG, 1X/DAY
     Route: 042
     Dates: start: 20101011
  27. RED BLOOD CELLS [Concomitant]
     Dosage: 2 DF, 1X/DAY
     Route: 042
     Dates: start: 20101018, end: 20101018
  28. NOREPINEPHRINE [Concomitant]
     Dosage: UNK
     Route: 042
     Dates: start: 20101001, end: 20101020
  29. PROPOFOL [Concomitant]
     Indication: SEDATION
     Dosage: 100 MG/HR, CONTINUOUS EVERY DURING 19 HRS
     Route: 042
     Dates: start: 20101001, end: 20101002
  30. ASCORBIC ACID [Concomitant]
     Indication: MEDICAL DIET
     Dosage: 1 G, 3 IN A WEEK
     Route: 042
     Dates: start: 20101012
  31. ALBUMIN 4% [Concomitant]
     Dosage: 500 ML, 1X/DAY
     Route: 042
     Dates: start: 20101011, end: 20101011
  32. AMIKACIN [Concomitant]
     Indication: PERITONITIS
     Dosage: 1500 MG, 1X/DAY
     Route: 042
     Dates: start: 20101001, end: 20101002
  33. AMIKACIN [Concomitant]
     Dosage: 1500 MG, 1X/DAY
     Route: 042
     Dates: start: 20101002, end: 20101008
  34. IMIPENEM [Concomitant]
     Dosage: 1000 MG, 1X/DAY
     Route: 042
     Dates: start: 20101020, end: 20101020
  35. EPINEPHRINE [Concomitant]
     Indication: SEPTIC SHOCK
     Dosage: 50 MG, (CONTINUOUS
     Route: 042
     Dates: start: 20101003, end: 20101010
  36. NOREPINEPHRINE [Concomitant]
     Indication: SEPTIC SHOCK
     Dosage: VARIABLE (MG, 1IN 1D)
     Route: 042
     Dates: start: 20101001, end: 20101020
  37. HEPARIN [Concomitant]
     Dosage: 5000 IU, DAILY
     Route: 042
     Dates: start: 20101013, end: 20101021
  38. AMIODARONE [Concomitant]
     Dosage: 200 MG, 1X/DAY
     Route: 048
     Dates: start: 20101015, end: 20101019
  39. ALBUMINAR-20 [Concomitant]
     Dosage: 200 ML, 1X/DAY
     Route: 042
     Dates: start: 20101005, end: 20101005
  40. AMIKACIN [Concomitant]
     Dosage: 2 G, 1X/DAY
     Route: 042
     Dates: start: 20101003, end: 20101003
  41. NEFOPAM [Concomitant]
     Indication: ANALGESIC THERAPY
     Dosage: 80 MG/J (80MG CONTINUOUS)
     Route: 042
     Dates: start: 20101009, end: 20101012
  42. CYANOCOBALAMIN [Concomitant]
     Indication: MEDICAL DIET
     Dosage: 1000 MG, 1X/DAY
     Route: 042
     Dates: start: 20101014, end: 20101014
  43. INTERFERON ALFA [Concomitant]
     Indication: ANAEMIA
     Dosage: 2 DF, 1X/DAY
     Route: 042
     Dates: start: 20101002, end: 20101003
  44. FUROSEMIDE [Concomitant]
     Indication: RENAL IMPAIRMENT
     Dosage: 2 G, DAILY
     Route: 042
     Dates: start: 20101003, end: 20101111
  45. HYDROCORTISONE [Concomitant]
     Indication: SHOCK
     Dosage: 200 MG, DAILY
     Route: 042
     Dates: start: 20101001, end: 20101022
  46. AMIODARONE [Concomitant]
     Dosage: 200 MG, 1X/DAY
     Route: 048
     Dates: start: 20101011, end: 20101019
  47. PHOCYTAN [Concomitant]
     Indication: HYPOPHOSPHATAEMIA
     Dosage: 25 MG/HR,CONTINUOUS
     Route: 042
     Dates: start: 20101004, end: 20101004
  48. CISATRACURIUM [Concomitant]
     Indication: PRODUCT USED FOR UNKNOWN INDICATION
     Dosage: 10 MG, 1X/DAY
     Route: 042
     Dates: start: 20101001, end: 20101002
  49. IMIPENEM [Concomitant]
     Indication: PERITONITIS
     Dosage: 1000 MG, 1X/DAY
     Route: 042
     Dates: start: 20101001, end: 20101002
  50. ALFENTANIL HYDROCHLORIDE [Concomitant]
     Indication: ANALGESIC THERAPY
     Dosage: 0.25 MG, AS NEEDED
     Route: 042
     Dates: start: 20101001, end: 20101015
  51. ACETAMINOPHEN [Concomitant]
     Indication: ANALGESIC THERAPY
     Dosage: 1 G, 3X/DAY
     Route: 042
     Dates: start: 20101009, end: 20101012
  52. HALOPERIDOL [Concomitant]
     Indication: SEDATION
     Dosage: 2 MG, 1X/DAY
     Route: 042
     Dates: start: 20101019, end: 20101019
  53. BUDESONIDE [Concomitant]
     Indication: BRONCHIAL DISORDER
     Dosage: 1 MG, UNK
     Route: 045
     Dates: start: 20101019, end: 20101019
  54. RED BLOOD CELLS [Concomitant]
     Indication: ANAEMIA
     Dosage: 2 DF, 1X/DAY
     Route: 042
     Dates: start: 20101005, end: 20101006
  55. HYDROCORTISONE [Concomitant]
     Dosage: 100 MG, 4X/DAY
     Route: 042
     Dates: start: 20101001, end: 20101011
  56. CILASTATIN SODIUM [Concomitant]
     Indication: PERITONITIS
     Dosage: 500 MG, 3X/DAY
     Route: 042
     Dates: start: 20101001, end: 20101028
  57. IPRATROPIUM BROMIDE [Concomitant]
     Indication: BRONCHOSPASM
     Dosage: 0.5 MG, 3X/DAY
     Route: 045
     Dates: start: 20101021, end: 20101118
  58. ALBUMINAR-20 [Concomitant]
     Indication: HYPOALBUMINAEMIA
     Dosage: 100 ML, 3X/DAY
     Route: 042
     Dates: start: 20101001, end: 20101003
  59. VITAMIN K TAB [Concomitant]
     Indication: MEDICAL DIET
     Dosage: 10 MG, WEEKLY
     Route: 042
     Dates: start: 20101019
  60. IBUPROFEN [Concomitant]
     Indication: ANAEMIA
     Dosage: 100 MG, 2 IN 1 WEEK
     Route: 042
     Dates: start: 20101001, end: 20101005
  61. SERPASIL-ESIDRIX [Concomitant]
     Indication: SEDATION
     Dosage: 100 MG, 1X/DAY
     Route: 042
     Dates: start: 20101001, end: 20101002
  62. HYDROXYZINE [Concomitant]
     Indication: ANXIOLYTIC THERAPY
     Dosage: 50 MG, 1X/DAY
     Route: 042
     Dates: start: 20101012, end: 20101014
  63. FUROSEMIDE [Concomitant]
     Indication: RENAL FAILURE
     Dosage: 40 MG, CONTINUOUS DURING 3 HRS
     Route: 042
     Dates: start: 20101002, end: 20101002
  64. INSULIN PORCINE [Concomitant]
     Indication: DIABETES MELLITUS INADEQUATE CONTROL
     Dosage: UNK
     Route: 042
     Dates: start: 20101001
  65. SUFENTANIL CITRATE [Concomitant]
     Indication: SEDATION
     Dosage: 4 MG/HR CONTINUOUS
     Route: 042
     Dates: start: 20101001, end: 20101003
  66. IPRATROPIUM BROMIDE [Concomitant]
     Indication: BRONCHIAL DISORDER
     Dosage: 0.5 MG, 4X/DAY
     Route: 045
     Dates: start: 20101001, end: 20101006
  67. TERBUTALINE SULFATE [Concomitant]
     Indication: BRONCHOSPASM
     Dosage: 5 MG, 3X/DAY
     Route: 045
     Dates: start: 20101021, end: 20101118
  68. HETASTARCH [Concomitant]
     Indication: HYPOVOLAEMIA
     Dosage: 500 ML, VARIABLE
     Route: 042
     Dates: start: 20101001
  69. ASCORBIC ACID [Concomitant]
     Dosage: 1 G, 1X/DAY
     Route: 042
     Dates: start: 20101003, end: 20101012
  70. ESOMEPRAZOLE [Concomitant]
     Indication: PROPHYLAXIS AGAINST GASTROINTESTINAL ULCER
     Dosage: 40 MG, 2X/DAY
     Route: 042
     Dates: start: 20101001, end: 20101011
  71. HEPARIN [Concomitant]
     Indication: PULMONARY EMBOLISM
     Dosage: 5333 IU, DAILY
     Route: 042
     Dates: start: 20101002, end: 20101002

REACTIONS (4)
  - COLITIS [None]
  - SEPSIS [None]
  - PERITONITIS [None]
  - PNEUMATOSIS INTESTINALIS [None]
